FAERS Safety Report 6093472-0 (Version None)
Quarter: 2009Q1

REPORT INFORMATION
  Report Type: 
  Country: None (occurrence: None)
  Receive Date: 20090226
  Receipt Date: 20090217
  Transmission Date: 20090719
  Serious: Yes (Death)
  Sender: FDA-Public Use
  Company Number: FR-AMGEN-UK269847

PATIENT
  Sex: Male
  Weight: 96 kg

DRUGS (5)
  1. ROMIPLOSTIM [Suspect]
     Indication: IDIOPATHIC THROMBOCYTOPENIC PURPURA
     Route: 058
     Dates: start: 20080111, end: 20080215
  2. ROMIPLOSTIM [Suspect]
     Route: 058
  3. FUROSEMIDE [Concomitant]
     Route: 048
  4. XATRAL [Concomitant]
     Route: 065
  5. DIGOXIN [Concomitant]
     Route: 065

REACTIONS (2)
  - DRUG INEFFECTIVE [None]
  - SEPTIC SHOCK [None]
